FAERS Safety Report 20946795 (Version 2)
Quarter: 2022Q2

REPORT INFORMATION
  Report Type: Spontaneous
  Country: US (occurrence: US)
  Receive Date: 20220610
  Receipt Date: 20220610
  Transmission Date: 20220721
  Serious: Yes (Other)
  Sender: FDA-Public Use
  Company Number: US-PFIZER INC-202200799282

PATIENT
  Age: 90 Year
  Sex: Male

DRUGS (1)
  1. AMIODARONE HYDROCHLORIDE [Suspect]
     Active Substance: AMIODARONE HYDROCHLORIDE
     Indication: Diabetes mellitus
     Dosage: 200 MG, DAILY (LOW-DOSE )
     Route: 048

REACTIONS (2)
  - Neurotoxicity [Recovering/Resolving]
  - Hyperammonaemia [Recovering/Resolving]
